FAERS Safety Report 16431472 (Version 11)
Quarter: 2019Q4

REPORT INFORMATION
  Report Type: Spontaneous
  Country: US (occurrence: US)
  Receive Date: 20190614
  Receipt Date: 20191119
  Transmission Date: 20200122
  Serious: No
  Sender: FDA-Public Use
  Company Number: US-PFIZER INC-2019252648

PATIENT
  Age: 70 Year
  Sex: Female
  Weight: 71 kg

DRUGS (4)
  1. LETROZOLE. [Concomitant]
     Active Substance: LETROZOLE
     Indication: HORMONE SUPPRESSION THERAPY
     Dosage: 2.5 MG, 1X/DAY
     Route: 048
     Dates: start: 200901
  2. LETROZOLE. [Concomitant]
     Active Substance: LETROZOLE
     Indication: BREAST CANCER FEMALE
  3. IBRANCE [Suspect]
     Active Substance: PALBOCICLIB
     Indication: BREAST CANCER METASTATIC
     Dosage: 125 MG, CYCLIC (ONCE A DAY FOR 21 DAYS AND THEN 7 DAYS OFF)
     Dates: start: 2019, end: 2019
  4. IBRANCE [Interacting]
     Active Substance: PALBOCICLIB
     Dosage: 125 MG, CYCLIC (125MG CAPSULES BY MOUTH ONCE DAILY; ON IT FOR 3 WEEKS, THEN ONE WEEK OFF)
     Route: 048
     Dates: start: 201901

REACTIONS (12)
  - Malaise [Recovering/Resolving]
  - Food interaction [Unknown]
  - Incorrect dose administered [Unknown]
  - Memory impairment [Unknown]
  - Intentional product misuse [Unknown]
  - Condition aggravated [Unknown]
  - Fatigue [Not Recovered/Not Resolved]
  - Feeling abnormal [Unknown]
  - Dizziness [Unknown]
  - Neoplasm progression [Unknown]
  - Cognitive disorder [Unknown]
  - Insomnia [Unknown]

NARRATIVE: CASE EVENT DATE: 2019
